FAERS Safety Report 5059544-4 (Version None)
Quarter: 2006Q3

REPORT INFORMATION
  Report Type: 
  Country: None (occurrence: None)
  Receive Date: 20060724
  Receipt Date: 20060707
  Transmission Date: 20061208
  Serious: Yes (Hospitalization)
  Sender: FDA-Public Use
  Company Number: PHRM2006FR02015

PATIENT
  Age: 87 Year
  Sex: Female

DRUGS (7)
  1. COVERSYL [Concomitant]
  2. ATORVASTATIN CALCIUM [Suspect]
     Dosage: 80 MG/DAY
     Route: 048
  3. PLAVIX [Concomitant]
  4. LEXOMIL [Concomitant]
  5. TANAKAN [Concomitant]
  6. TARDYFERON [Concomitant]
  7. TAREG [Suspect]
     Indication: HYPERTENSION
     Dosage: 80 MG, QD
     Route: 048
     Dates: start: 20060401

REACTIONS (2)
  - CONFUSIONAL STATE [None]
  - HYPONATRAEMIA [None]
